FAERS Safety Report 5165573-2 (Version None)
Quarter: 2006Q4

REPORT INFORMATION
  Report Type: 
  Country: None (occurrence: None)
  Receive Date: 20061206
  Receipt Date: 19991108
  Transmission Date: 20070319
  Serious: Yes (Hospitalization)
  Sender: FDA-Public Use
  Company Number: FR-GLAXOSMITHKLINE-B0073311A

PATIENT
  Sex: Female
  Weight: 2.7 kg

DRUGS (4)
  1. LAMIVUDINE [Suspect]
     Indication: ANTIVIRAL PROPHYLAXIS
     Route: 048
  2. ZIDOVUDINE [Suspect]
     Indication: ANTIVIRAL PROPHYLAXIS
     Route: 048
  3. LAMIVUDINE [Suspect]
  4. ZIDOVUDINE [Suspect]

REACTIONS (26)
  - AMBLYOPIA [None]
  - ANAEMIA [None]
  - ARTHRITIS [None]
  - BLOOD CREATINE PHOSPHOKINASE INCREASED [None]
  - BLOOD LACTIC ACID INCREASED [None]
  - CAESAREAN SECTION [None]
  - CARDIOMEGALY [None]
  - CARDIOMYOPATHY [None]
  - COLLAGEN DISORDER [None]
  - DRUG EXPOSURE DURING PREGNANCY [None]
  - ELECTROENCEPHALOGRAM ABNORMAL [None]
  - HYPOTONIA [None]
  - INTENTION TREMOR [None]
  - METABOLIC ACIDOSIS [None]
  - MITOCHONDRIAL CYTOPATHY [None]
  - MITOCHONDRIAL TOXICITY [None]
  - NEUTROPENIA [None]
  - PREMATURE BABY [None]
  - PSYCHOMOTOR HYPERACTIVITY [None]
  - PSYCHOMOTOR RETARDATION [None]
  - SCAPHOCEPHALY [None]
  - SKIN HYPERTROPHY [None]
  - STAPHYLOCOCCAL INFECTION [None]
  - STRABISMUS [None]
  - TACHYPNOEA [None]
  - TREMOR [None]
